FAERS Safety Report 7344825-1 (Version None)
Quarter: 2011Q1

REPORT INFORMATION
  Report Type: 
  Country: None (occurrence: None)
  Receive Date: 20110310
  Receipt Date: 20100809
  Transmission Date: 20110831
  Serious: Yes (Hospitalization, Disabling, Other)
  Sender: FDA-Public Use
  Company Number: US-BAYER-200938599NA

PATIENT
  Sex: Female
  Weight: 90.7 kg

DRUGS (8)
  1. YASMIN [Suspect]
     Indication: CONTRACEPTION
     Route: 048
     Dates: start: 20060404, end: 20080926
  2. LORATADINE [Concomitant]
     Route: 065
  3. NEXIUM [Concomitant]
  4. YAZ [Suspect]
     Indication: CONTRACEPTION
     Route: 048
     Dates: start: 20080929, end: 20081201
  5. PROTONIX [Concomitant]
     Route: 065
  6. NORVASC [Concomitant]
     Route: 065
  7. MICROGESTIN 1.5/30 [Concomitant]
     Indication: CONTRACEPTION
     Route: 065
     Dates: start: 20040301, end: 20050101
  8. YASMIN [Suspect]
     Dates: start: 20080901, end: 20081201

REACTIONS (18)
  - HEADACHE [None]
  - DYSSTASIA [None]
  - CONVULSION [None]
  - HYPOKALAEMIA [None]
  - PAIN IN EXTREMITY [None]
  - MUSCLE FATIGUE [None]
  - PAIN [None]
  - VENOUS PRESSURE INCREASED [None]
  - HAEMORRHAGIC CEREBRAL INFARCTION [None]
  - AMNESIA [None]
  - GAIT DISTURBANCE [None]
  - INSPIRATORY CAPACITY DECREASED [None]
  - DYSARTHRIA [None]
  - SUBARACHNOID HAEMORRHAGE [None]
  - BRAIN OEDEMA [None]
  - MENINGEAL DISORDER [None]
  - SUPERIOR SAGITTAL SINUS THROMBOSIS [None]
  - HAEMORRHAGIC STROKE [None]
